FAERS Safety Report 7183834-2 (Version None)
Quarter: 2010Q4

REPORT INFORMATION
  Report Type: 
  Country: None (occurrence: None)
  Receive Date: 20101220
  Receipt Date: 20101220
  Transmission Date: 20110411
  Serious: Yes (Other)
  Sender: FDA-Public Use
  Company Number: None

PATIENT
  Age: 43 Year
  Sex: Female
  Weight: 72.5755 kg

DRUGS (1)
  1. DARVOCET-N 100 [Suspect]
     Indication: POSTOPERATIVE CARE
     Dosage: 1 TABLET 4-6 HOURS PO
     Route: 048
     Dates: start: 20101027, end: 20101215

REACTIONS (2)
  - PALPITATIONS [None]
  - PRODUCT QUALITY ISSUE [None]
